FAERS Safety Report 7238124-6 (Version None)
Quarter: 2011Q1

REPORT INFORMATION
  Report Type: 
  Country: None (occurrence: None)
  Receive Date: 20110121
  Receipt Date: 20110110
  Transmission Date: 20110831
  Serious: Yes (Life-Threatening, Hospitalization, Other)
  Sender: FDA-Public Use
  Company Number: US-ELI_LILLY_AND_COMPANY-US201011001622

PATIENT
  Sex: Female
  Weight: 73.923 kg

DRUGS (7)
  1. VISTARIL [Concomitant]
     Indication: ANXIETY
  2. LYRICA [Concomitant]
     Indication: NEURALGIA
     Dosage: 75 MG, 2/D
  3. CYMBALTA [Suspect]
     Indication: DEPRESSION
     Dosage: 60 MG, DAILY (1/D)
     Dates: start: 20100628, end: 20101101
  4. LYRICA [Concomitant]
     Dosage: 75 MG, EACH MORNING
  5. LYRICA [Concomitant]
     Dosage: 150 MG, 2/D
     Dates: start: 20101021
  6. LYRICA [Concomitant]
     Dosage: 150 MG, EACH EVENING
  7. SINGULAIR [Concomitant]
     Indication: RHINITIS ALLERGIC
     Dosage: 10 MG, UNK
     Dates: start: 20100801

REACTIONS (6)
  - MENORRHAGIA [None]
  - SYNCOPE [None]
  - BLOOD PROLACTIN INCREASED [None]
  - TILT TABLE TEST [None]
  - IRON DEFICIENCY ANAEMIA [None]
  - RESPIRATORY DEPRESSION [None]
